FAERS Safety Report 12598478 (Version 2)
Quarter: 2016Q3

REPORT INFORMATION
  Report Type: Spontaneous
  Country: BR (occurrence: BR)
  Receive Date: 20160726
  Receipt Date: 20160909
  Transmission Date: 20161109
  Serious: Yes (Death, Hospitalization, Other)
  Sender: FDA-Public Use
  Company Number: BR-009507513-1607BRA010841

PATIENT
  Age: 74 Year
  Sex: Male
  Weight: 64 kg

DRUGS (18)
  1. FAULDLEUCO [Concomitant]
     Active Substance: LEUCOVORIN CALCIUM
     Indication: CHEMOTHERAPY
     Dosage: 346.6MG, INTRAVENOUS
     Route: 042
     Dates: end: 20160617
  2. LOPERAMIDE [Concomitant]
     Active Substance: LOPERAMIDE
  3. FLUOROURACIL. [Concomitant]
     Active Substance: FLUOROURACIL
     Dosage: 693.2MG + 4159.2MG BL 46H
     Dates: end: 20160617
  4. DOXYCYCLINE. [Concomitant]
     Active Substance: DOXYCYCLINE
  5. LUFTAL [Concomitant]
     Active Substance: DIMETHICONE
  6. TECNOTECAN [Concomitant]
     Active Substance: IRINOTECAN HYDROCHLORIDE
     Indication: CHEMOTHERAPY
     Dosage: 311.94MG, INTRAVENOUS
     Route: 042
     Dates: end: 20160617
  7. FLUOROURACIL. [Concomitant]
     Active Substance: FLUOROURACIL
     Dosage: UNK, DOSE REDUCTION
     Dates: start: 20160801
  8. BUSCOPAN COMPOSTO [Concomitant]
  9. EMEND (FOSAPREPITANT DIMEGLUMINE) [Suspect]
     Active Substance: FOSAPREPITANT DIMEGLUMINE
     Dosage: UNK
     Route: 042
     Dates: start: 20160801
  10. ASPIRIN. [Concomitant]
     Active Substance: ASPIRIN
  11. EMEND (FOSAPREPITANT DIMEGLUMINE) [Suspect]
     Active Substance: FOSAPREPITANT DIMEGLUMINE
     Indication: CHEMOTHERAPY
     Dosage: 150 MG, UNK
     Route: 042
     Dates: end: 20160617
  12. OMEPRAZOLE. [Concomitant]
     Active Substance: OMEPRAZOLE
     Route: 048
  13. METFORMIN [Concomitant]
     Active Substance: METFORMIN HYDROCHLORIDE
  14. ERBITUX [Concomitant]
     Active Substance: CETUXIMAB
     Indication: CHEMOTHERAPY
     Dosage: 866.5 MG, INTRAVENOUS
     Route: 042
     Dates: end: 20160617
  15. TECNOTECAN [Concomitant]
     Active Substance: IRINOTECAN HYDROCHLORIDE
     Dosage: UNK
     Route: 042
     Dates: start: 20160801
  16. CORUS H [Concomitant]
     Active Substance: HYDROCHLOROTHIAZIDE\LOSARTAN POTASSIUM
  17. ERBITUX [Concomitant]
     Active Substance: CETUXIMAB
     Dosage: UNK
     Route: 042
     Dates: start: 20160801
  18. VONAU [Concomitant]
     Active Substance: ONDANSETRON HYDROCHLORIDE

REACTIONS (2)
  - Colitis [Recovered/Resolved]
  - Death [Fatal]

NARRATIVE: CASE EVENT DATE: 20160707
